FAERS Safety Report 16126380 (Version 1)
Quarter: 2019Q2

REPORT INFORMATION
  Report Type: Spontaneous
  Country: US (occurrence: US)
  Receive Date: 20190326
  Receipt Date: 20190326
  Transmission Date: 20190711
  Serious: Yes (Life-Threatening, Hospitalization, Disabling, Other)
  Sender: FDA-Public Use
  Company Number: None

PATIENT
  Age: 51 Year
  Sex: Female
  Weight: 56.7 kg

DRUGS (3)
  1. ABILIFY [Concomitant]
     Active Substance: ARIPIPRAZOLE
  2. PROLIXIN [Suspect]
     Active Substance: FLUPHENAZINE HYDROCHLORIDE
     Indication: PSYCHOTHERAPY
     Dosage: QUANTITY:10 INJECTION(S); INTO A VEIN?
     Dates: start: 20190117, end: 20190127
  3. PRIMETHERIN [Concomitant]

REACTIONS (6)
  - Inability to afford medication [None]
  - Malaria [None]
  - Pruritus [None]
  - Arthropod bite [None]
  - Skin haemorrhage [None]
  - Skin ulcer [None]

NARRATIVE: CASE EVENT DATE: 20190117
